FAERS Safety Report 7707350-1 (Version None)
Quarter: 2011Q3

REPORT INFORMATION
  Report Type: 
  Country: None (occurrence: None)
  Receive Date: 20110824
  Receipt Date: 20110816
  Transmission Date: 20111222
  Serious: Yes (Hospitalization)
  Sender: FDA-Public Use
  Company Number: US-JNJFOC-20110808910

PATIENT
  Sex: Male
  Weight: 48.9 kg

DRUGS (4)
  1. GROWTH HORMONE [Concomitant]
  2. METHOTREXATE [Concomitant]
  3. REMICADE [Suspect]
     Indication: INFLAMMATORY BOWEL DISEASE
     Route: 042
     Dates: start: 20101220
  4. REMICADE [Suspect]
     Route: 042
     Dates: start: 20070701

REACTIONS (3)
  - DISEASE PROGRESSION [None]
  - ANAL FISTULA [None]
  - INFLAMMATORY BOWEL DISEASE [None]
